FAERS Safety Report 8325368-5 (Version None)
Quarter: 2012Q2

REPORT INFORMATION
  Report Type: 
  Country: None (occurrence: None)
  Receive Date: 20120501
  Receipt Date: 20100409
  Transmission Date: 20120825
  Serious: No
  Sender: FDA-Public Use
  Company Number: US-TEVA-2010002129

PATIENT
  Sex: Female
  Weight: 52.21 kg

DRUGS (3)
  1. NUVIGIL [Suspect]
     Indication: NARCOLEPSY
     Dosage: 250 MILLIGRAM;
     Route: 048
     Dates: start: 20100301, end: 20100409
  2. NORTRIPTYLINE HCL [Concomitant]
  3. NUVIGIL [Suspect]
     Indication: CATAPLEXY

REACTIONS (2)
  - DRUG PRESCRIBING ERROR [None]
  - DRUG INEFFECTIVE [None]
